FAERS Safety Report 7911087-3 (Version None)
Quarter: 2011Q4

REPORT INFORMATION
  Report Type: 
  Country: None (occurrence: None)
  Receive Date: 20111114
  Receipt Date: 20111101
  Transmission Date: 20120403
  Serious: Yes (Hospitalization)
  Sender: FDA-Public Use
  Company Number: US-RANBAXY-2011US-50263

PATIENT
  Age: 58 Year
  Sex: Female

DRUGS (3)
  1. VERAPAMIL [Suspect]
     Indication: PRODUCT USED FOR UNKNOWN INDICATION
     Dosage: UNK, UNK
     Route: 048
  2. INSULIN [Suspect]
     Indication: CARDIOGENIC SHOCK
     Dosage: 80 IU BOLUS
     Route: 042
  3. INSULIN [Suspect]
     Dosage: 80-84 IU/HOUR
     Route: 042

REACTIONS (3)
  - OVERDOSE [None]
  - CARDIOGENIC SHOCK [None]
  - HYPOKALAEMIA [None]
